FAERS Safety Report 10503629 (Version 1)
Quarter: 2014Q4

REPORT INFORMATION
  Report Type: Spontaneous
  Country: US (occurrence: None)
  Receive Date: 20141007
  Receipt Date: 20141007
  Transmission Date: 20150528
  Serious: Yes (Death, Life-Threatening)
  Sender: FDA-Public Use
  Company Number: None

PATIENT
  Age: 42 Year
  Sex: Male
  Weight: 98.5 kg

DRUGS (3)
  1. ETOMIDATE. [Concomitant]
     Active Substance: ETOMIDATE
  2. SUCCINYLCHOLINE [Suspect]
     Active Substance: SUCCINYLCHOLINE
     Indication: RESPIRATORY DISTRESS
     Route: 042
     Dates: start: 20140916
  3. ATIVAN [Concomitant]
     Active Substance: LORAZEPAM

REACTIONS (5)
  - Bradycardia [None]
  - Cardiac arrest [None]
  - Laryngeal oedema [None]
  - General physical health deterioration [None]
  - Rhythm idioventricular [None]

NARRATIVE: CASE EVENT DATE: 20140916
